FAERS Safety Report 14236165 (Version 3)
Quarter: 2022Q1

REPORT INFORMATION
  Report Type: Report from Study
  Country: MX (occurrence: MX)
  Receive Date: 20171129
  Receipt Date: 20220120
  Transmission Date: 20220423
  Serious: Yes (Death, Other)
  Sender: FDA-Public Use
  Company Number: PHHY2017MX175297

PATIENT
  Age: 22 Year
  Sex: Male
  Weight: 101 kg

DRUGS (4)
  1. EXFORGE [Suspect]
     Active Substance: AMLODIPINE BESYLATE\VALSARTAN
     Indication: Hypertension
     Dosage: UNK (VALSARTAN 160 MG, AMLODIPINE 5 MG)
     Route: 065
     Dates: start: 2012
  2. EXFORGE [Suspect]
     Active Substance: AMLODIPINE BESYLATE\VALSARTAN
     Dosage: 1 DOSAGE FORM, QD
     Route: 048
     Dates: start: 2013
  3. EXFORGE [Suspect]
     Active Substance: AMLODIPINE BESYLATE\VALSARTAN
     Dosage: 2 DOSAGE FORM, QD  (VALSARTAN 160 MG, AMLODIPINE 5 MG)
     Route: 065
     Dates: start: 201709, end: 2019
  4. URELESS [Concomitant]
     Indication: Iron deficiency
     Dosage: 1 DOSAGE FORM, QD (1 PACKET)
     Route: 048
     Dates: start: 201707, end: 201710

REACTIONS (5)
  - Death [Fatal]
  - Kidney transplant rejection [Unknown]
  - Blood pressure increased [Unknown]
  - Hypotension [Unknown]
  - Inappropriate schedule of product administration [Unknown]

NARRATIVE: CASE EVENT DATE: 20141001
